FAERS Safety Report 15384469 (Version 2)
Quarter: 2018Q3

REPORT INFORMATION
  Report Type: Spontaneous
  Country: FR (occurrence: FR)
  Receive Date: 20180914
  Receipt Date: 20180927
  Transmission Date: 20181010
  Serious: Yes (Hospitalization, Other)
  Sender: FDA-Public Use
  Company Number: FR-009507513-2011SP026696

PATIENT
  Age: 32 Year
  Sex: Female
  Weight: 52 kg

DRUGS (3)
  1. FLAGYL [Suspect]
     Active Substance: METRONIDAZOLE\METRONIDAZOLE HYDROCHLORIDE
     Indication: BREAST ABSCESS
     Dosage: UNK
     Dates: start: 20110429
  2. RIFADINE [Interacting]
     Active Substance: RIFAMPIN
     Indication: BREAST ABSCESS
     Dosage: 3 DF, QD
     Route: 048
     Dates: start: 20110322, end: 20110429
  3. IMPLANON [Suspect]
     Active Substance: ETONOGESTREL
     Indication: PRODUCT USED FOR UNKNOWN INDICATION
     Dosage: IMPLANT
     Route: 058
     Dates: start: 20090331, end: 20110618

REACTIONS (8)
  - Dyskinesia [Unknown]
  - Breast abscess [Unknown]
  - Drug ineffective [Recovered/Resolved with Sequelae]
  - Alcohol intolerance [Unknown]
  - Post abortion haemorrhage [Unknown]
  - Pregnancy with implant contraceptive [Recovered/Resolved with Sequelae]
  - Loss of consciousness [Unknown]
  - Drug interaction [Recovered/Resolved]

NARRATIVE: CASE EVENT DATE: 201001
